FAERS Safety Report 8105287-X (Version None)
Quarter: 2012Q1

REPORT INFORMATION
  Report Type: 
  Country: None (occurrence: None)
  Receive Date: 20120201
  Receipt Date: 20120123
  Transmission Date: 20120608
  Serious: Yes (Other)
  Sender: FDA-Public Use
  Company Number: PHHY2012JP006881

PATIENT
  Age: 79 Year
  Sex: Female

DRUGS (4)
  1. ZOLEDRONIC ACID [Suspect]
     Indication: METASTASES TO BONE
     Dosage: UNK
     Dates: start: 20090101
  2. SPIRIVA [Concomitant]
  3. TS 1 [Concomitant]
     Dosage: 60 MG, UNK
     Route: 048
  4. MEDROXYPROGESTERONE ACETATE [Suspect]
     Indication: BREAST CANCER
     Dosage: 400 MG, UNK
     Route: 048

REACTIONS (4)
  - TUBULOINTERSTITIAL NEPHRITIS [None]
  - SEPSIS SYNDROME [None]
  - BLOOD CORTICOTROPHIN DECREASED [None]
  - PYURIA [None]
